FAERS Safety Report 8580504-0 (Version None)
Quarter: 2012Q3

REPORT INFORMATION
  Report Type: 
  Country: None (occurrence: None)
  Receive Date: 20120808
  Receipt Date: 20120727
  Transmission Date: 20120928
  Serious: Yes (Death, Hospitalization, Other)
  Sender: FDA-Public Use
  Company Number: JP-BAXTER-2012BAX012897

PATIENT
  Age: 60 Year
  Sex: Female

DRUGS (3)
  1. DIANEAL PD-2 W/ DEXTROSE 4.25% [Suspect]
     Indication: PERITONEAL LAVAGE
     Route: 033
     Dates: end: 20120719
  2. DIANEAL PD-2 W/ DEXTROSE 4.25% [Suspect]
     Indication: RENAL FAILURE CHRONIC
     Route: 033
     Dates: start: 20090406
  3. EXTRANEAL [Suspect]
     Indication: RENAL FAILURE CHRONIC
     Route: 033
     Dates: start: 20090406

REACTIONS (3)
  - WATER INTOXICATION [None]
  - FLUID RETENTION [None]
  - CARDIAC FAILURE [None]
